FAERS Safety Report 6673128-3 (Version None)
Quarter: 2010Q2

REPORT INFORMATION
  Report Type: 
  Country: None (occurrence: None)
  Receive Date: 20100408
  Receipt Date: 20100331
  Transmission Date: 20101027
  Serious: Yes (Hospitalization)
  Sender: FDA-Public Use
  Company Number: TR-ELI_LILLY_AND_COMPANY-TR201004000131

PATIENT

DRUGS (4)
  1. HUMALOG [Suspect]
     Indication: GESTATIONAL DIABETES
     Dosage: UNK UNK, 3/D
     Route: 064
     Dates: start: 20090101, end: 20100106
  2. HUMALOG [Suspect]
     Dosage: 5 U, NOON
     Route: 064
     Dates: start: 20090101, end: 20100106
  3. HUMALOG [Suspect]
     Dosage: 6 U, EACH EVENING
     Route: 064
     Dates: start: 20090101, end: 20100106
  4. MULTI-VITAMIN [Concomitant]
     Dosage: UNK, DAILY (1/D)
     Dates: start: 20090501, end: 20100106

REACTIONS (2)
  - DRUG EXPOSURE DURING PREGNANCY [None]
  - JAUNDICE [None]
